FAERS Safety Report 20348027 (Version 8)
Quarter: 2022Q4

REPORT INFORMATION
  Report Type: Spontaneous
  Country: JP (occurrence: JP)
  Receive Date: 20220118
  Receipt Date: 20221018
  Transmission Date: 20230113
  Serious: Yes (Hospitalization, Other)
  Sender: FDA-Public Use
  Company Number: JP-BRISTOL-MYERS SQUIBB COMPANY-BMS-2021-117274

PATIENT
  Age: 65 Year
  Sex: Male
  Weight: 43.9 kg

DRUGS (17)
  1. YERVOY [Suspect]
     Active Substance: IPILIMUMAB
     Indication: Non-small cell lung cancer recurrent
     Route: 041
     Dates: start: 20211006, end: 20211006
  2. YERVOY [Suspect]
     Active Substance: IPILIMUMAB
  3. OPDIVO [Suspect]
     Active Substance: NIVOLUMAB
     Indication: Non-small cell lung cancer recurrent
     Route: 041
     Dates: start: 20211006, end: 20211006
  4. SOLU-MEDROL [Suspect]
     Active Substance: METHYLPREDNISOLONE SODIUM SUCCINATE
     Indication: Guillain-Barre syndrome
     Route: 065
     Dates: start: 20211029, end: 20211108
  5. SOLU-MEDROL [Suspect]
     Active Substance: METHYLPREDNISOLONE SODIUM SUCCINATE
     Route: 065
     Dates: start: 20211116
  6. SOLU-MEDROL [Suspect]
     Active Substance: METHYLPREDNISOLONE SODIUM SUCCINATE
     Route: 065
     Dates: start: 20211123, end: 20211127
  7. PACLITAXEL [Suspect]
     Active Substance: PACLITAXEL
     Indication: Non-small cell lung cancer recurrent
     Route: 065
     Dates: start: 20211006, end: 20211006
  8. PACLITAXEL [Suspect]
     Active Substance: PACLITAXEL
  9. CARBOPLATIN [Suspect]
     Active Substance: CARBOPLATIN
     Indication: Non-small cell lung cancer recurrent
     Route: 065
     Dates: start: 20211006, end: 20211006
  10. PREDONINE [Suspect]
     Active Substance: PREDNISOLONE
     Indication: Peripheral sensory neuropathy
     Route: 048
     Dates: start: 20211109, end: 20211116
  11. PREDONINE [Suspect]
     Active Substance: PREDNISOLONE
     Route: 048
  12. PREDONINE [Suspect]
     Active Substance: PREDNISOLONE
     Route: 048
     Dates: start: 20211128
  13. PREDONINE [Suspect]
     Active Substance: PREDNISOLONE
     Route: 048
     Dates: start: 20211223
  14. SITAGLIPTIN [Suspect]
     Active Substance: SITAGLIPTIN
     Indication: Steroid diabetes
     Route: 048
     Dates: start: 20211111
  15. SITAGLIPTIN [Suspect]
     Active Substance: SITAGLIPTIN
     Indication: Hyperglycaemia
  16. RABEPRAZOLE SODIUM [Concomitant]
     Active Substance: RABEPRAZOLE SODIUM
     Indication: Prophylaxis against gastrointestinal ulcer
     Route: 048
     Dates: start: 20211010
  17. RABEPRAZOLE SODIUM [Concomitant]
     Active Substance: RABEPRAZOLE SODIUM

REACTIONS (8)
  - Hyperkalaemia [Recovering/Resolving]
  - Guillain-Barre syndrome [Recovering/Resolving]
  - Steroid diabetes [Unknown]
  - Insomnia [Unknown]
  - Constipation [Unknown]
  - Diarrhoea [Unknown]
  - Immune-mediated hypothyroidism [Unknown]
  - Hyperglycaemia [Unknown]

NARRATIVE: CASE EVENT DATE: 20211001
